FAERS Safety Report 13187498 (Version 2)
Quarter: 2017Q1

REPORT INFORMATION
  Report Type: Spontaneous
  Country: US (occurrence: US)
  Receive Date: 20170206
  Receipt Date: 20170208
  Transmission Date: 20170428
  Serious: No
  Sender: FDA-Public Use
  Company Number: US-PFIZER INC-2016540747

PATIENT
  Age: 31 Year
  Sex: Female
  Weight: 68.27 kg

DRUGS (20)
  1. LYRICA [Suspect]
     Active Substance: PREGABALIN
     Indication: EHLERS-DANLOS SYNDROME
     Dosage: 75 MG, 2X/DAY
     Route: 048
  2. SERTRALINE HCL [Concomitant]
     Active Substance: SERTRALINE HYDROCHLORIDE
     Dosage: 100 MG, 1X/DAY
     Route: 048
  3. MAGNESIUM [Concomitant]
     Active Substance: MAGNESIUM
     Dosage: 250 MG, 2X/DAY [WITH A MEAL]
     Route: 048
  4. MELATONIN [Concomitant]
     Active Substance: MELATONIN
     Dosage: 5 MG, 1 QOD PRN
  5. BENADRYL [Concomitant]
     Active Substance: DIPHENHYDRAMINE HYDROCHLORIDE
     Dosage: 25 MG, 1X/DAY QHS
     Route: 048
  6. AMOXICILLIN- POT CLAVULANATE [Concomitant]
     Dosage: [AMOXICILLIN 875MG-POT CLAVULANATE125MG], 2X/DAY (EVERY 12 HRS PRN)
     Route: 048
  7. MULTIPLE VITAMINS [Concomitant]
     Active Substance: VITAMINS
     Dosage: 1 DF, 1X/DAY
  8. VALERIAN ROOT [Concomitant]
     Active Substance: VALERIAN
     Dosage: 100MG/ 400MG, 3X/DAY
  9. LAXATIVE [Concomitant]
     Active Substance: UNSPECIFIED INGREDIENT
     Dosage: 1 DF, AS NEEDED
     Route: 048
  10. FEVERFEW [Concomitant]
     Active Substance: FEVERFEW
     Dosage: 25 GTT, 1X/DAY [IN WATER QHS]
     Route: 048
  11. TRAMADOL HCL [Concomitant]
     Active Substance: TRAMADOL HYDROCHLORIDE
     Indication: PAIN
     Dosage: 50 MG, 3X/DAY AS NEEDED
     Route: 048
  12. STOOL SOFTENER [Concomitant]
     Dosage: 1 DF, AS NEEDED
     Route: 048
  13. LYRICA [Suspect]
     Active Substance: PREGABALIN
     Indication: NERVOUS SYSTEM DISORDER
  14. BACLOFEN. [Concomitant]
     Active Substance: BACLOFEN
     Dosage: 10 MG, 1X/DAY [QHS]
     Route: 048
  15. LYRICA [Suspect]
     Active Substance: PREGABALIN
     Indication: OSTEOARTHRITIS
     Dosage: 225 MG, 2X/DAY
     Route: 048
  16. DICLOFENAC SODIUM. [Concomitant]
     Active Substance: DICLOFENAC SODIUM
     Dosage: 1 %, 4X/DAY [1 INCH TO LEFT SHOULDER]
     Route: 062
  17. MELOXICAM. [Concomitant]
     Active Substance: MELOXICAM
     Dosage: 15 MG, 1X/DAY [QHS]
     Route: 048
  18. MECLIZINE HCL [Concomitant]
     Active Substance: MECLIZINE HYDROCHLORIDE
     Indication: DIZZINESS
     Dosage: 25 MG, 3X/DAY (EVERY 8 HOURS AS NEEDED)
     Route: 048
  19. ADVIL [Concomitant]
     Active Substance: IBUPROFEN
     Dosage: 600 MG, 2X/DAY (PRN)
  20. FLONASE [Concomitant]
     Active Substance: FLUTICASONE PROPIONATE
     Dosage: 2 DF, 1X/DAY (50MCG/ACT, 1 SPRAY IN EACH NOSTRIL)
     Route: 045

REACTIONS (1)
  - Malaise [Not Recovered/Not Resolved]

NARRATIVE: CASE EVENT DATE: 20161127
